FAERS Safety Report 10449867 (Version 1)
Quarter: 2014Q3

REPORT INFORMATION
  Report Type: Spontaneous
  Country: US (occurrence: None)
  Receive Date: 20140911
  Receipt Date: 20140911
  Transmission Date: 20150326
  Serious: No
  Sender: FDA-Public Use
  Company Number: None

PATIENT
  Age: 50 Year
  Sex: Female
  Weight: 65.77 kg

DRUGS (1)
  1. OXYMORPHONE 15MG EXTENDED RELEASE ACTAVIS [Suspect]
     Active Substance: OXYMORPHONE
     Indication: PAIN MANAGEMENT
     Dosage: ONE @6AMG, 1 AT 6PM, TWICE DAILY, TAKEN BY MOUTH
     Route: 048

REACTIONS (3)
  - Drug effect decreased [None]
  - Product quality issue [None]
  - Dependence [None]

NARRATIVE: CASE EVENT DATE: 20140815
